FAERS Safety Report 6996182-8 (Version None)
Quarter: 2010Q3

REPORT INFORMATION
  Report Type: 
  Country: None (occurrence: None)
  Receive Date: 20100918
  Receipt Date: 20090112
  Transmission Date: 20110219
  Serious: No
  Sender: FDA-Public Use
  Company Number: US-WYE-H07669009

PATIENT
  Sex: Female
  Weight: 52.21 kg

DRUGS (4)
  1. EFFEXOR XR [Suspect]
     Indication: DEPRESSION
     Route: 048
     Dates: start: 20080801
  2. EFFEXOR XR [Suspect]
     Route: 048
     Dates: start: 20080801, end: 20081201
  3. EFFEXOR XR [Suspect]
     Route: 048
     Dates: start: 20081201
  4. EFFEXOR XR [Suspect]
     Route: 048
     Dates: end: 20090101

REACTIONS (8)
  - DIZZINESS [None]
  - DRUG WITHDRAWAL SYNDROME [None]
  - FREQUENT BOWEL MOVEMENTS [None]
  - HEADACHE [None]
  - MEMORY IMPAIRMENT [None]
  - NAUSEA [None]
  - POOR QUALITY SLEEP [None]
  - UNEVALUABLE EVENT [None]
